FAERS Safety Report 6424857-8 (Version None)
Quarter: 2009Q4

REPORT INFORMATION
  Report Type: 
  Country: None (occurrence: None)
  Receive Date: 20091029
  Receipt Date: 20090928
  Transmission Date: 20100525
  Serious: Yes (Other)
  Sender: FDA-Public Use
  Company Number: DSA_34085_2009

PATIENT
  Sex: Female

DRUGS (11)
  1. CARDIZEM CD [Suspect]
     Indication: ATRIAL FIBRILLATION
     Dosage: (240 MG QD ORAL)
     Route: 048
     Dates: start: 20081220
  2. CARDIZEM CD [Suspect]
     Indication: HYPERTENSION
     Dosage: (240 MG QD ORAL)
     Route: 048
     Dates: start: 20081220
  3. VESICARE [Suspect]
     Indication: HYPERTONIC BLADDER
     Dosage: (5 MG QD ORAL)
     Route: 048
     Dates: start: 20080201, end: 20090301
  4. SYNTHROID [Concomitant]
  5. FOSAMAX [Concomitant]
  6. SINGULAIR [Concomitant]
  7. SYMBICORT [Concomitant]
  8. NASAL SPRAY [Concomitant]
  9. M.V.I. [Concomitant]
  10. CALCIUM [Concomitant]
  11. ZESTORETIC [Concomitant]

REACTIONS (4)
  - DRUG INTERACTION [None]
  - NEPHROSCLEROSIS [None]
  - PROTEINURIA [None]
  - URINARY RETENTION [None]
